FAERS Safety Report 10244926 (Version 1)
Quarter: 2014Q2

REPORT INFORMATION
  Report Type: Spontaneous
  Country: US (occurrence: US)
  Receive Date: 20140618
  Receipt Date: 20140618
  Transmission Date: 20141212
  Serious: No
  Sender: FDA-Public Use
  Company Number: US-GALDERMA-US14001069

PATIENT
  Age: 50 Year
  Sex: Female

DRUGS (10)
  1. MIRVASO (BRIMONIDINE) TOPICAL GEL, 0.33% [Suspect]
     Indication: ROSACEA
     Dosage: 0.33%
     Route: 061
     Dates: start: 20140316, end: 20140318
  2. MIRVASO (BRIMONIDINE) TOPICAL GEL, 0.33% [Suspect]
     Dosage: 0.33%
     Route: 061
     Dates: start: 20140318, end: 20140318
  3. HYZAAR [Concomitant]
     Indication: HYPERTENSION
     Dosage: 25/100
     Route: 048
     Dates: start: 2012
  4. LEXAPRO (ESCITALOPRAM OXALATE) [Concomitant]
     Indication: DEPRESSION
     Route: 048
     Dates: start: 2009
  5. GREEN TEA MOISTURIZER [Concomitant]
     Indication: DRY SKIN PROPHYLAXIS
     Route: 061
  6. PROSACEA [Concomitant]
     Indication: ROSACEA
     Route: 061
  7. BATH AND BODY WORKS SOAP [Concomitant]
     Indication: THERAPEUTIC SKIN CARE TOPICAL
     Route: 061
  8. FISH OIL [Concomitant]
  9. VITAMIN [Concomitant]
  10. MIRENA [Concomitant]
     Route: 015
     Dates: start: 2010

REACTIONS (2)
  - Erythema [Recovered/Resolved]
  - Skin burning sensation [Recovered/Resolved]
